FAERS Safety Report 8766196 (Version 1)
Quarter: 2012Q4

REPORT INFORMATION
  Report Type: Report from Study
  Country: AU (occurrence: AU)
  Receive Date: 20120904
  Receipt Date: 20120904
  Transmission Date: 20130627
  Serious: Yes (Life-Threatening, Hospitalization, Other)
  Sender: FDA-Public Use
  Company Number: AU-ASTRAZENECA-2012SE65418

PATIENT
  Age: 0 Day
  Sex: Female
  Weight: 3.2 kg

DRUGS (4)
  1. SEROQUEL XR [Suspect]
     Indication: PSYCHOTIC DISORDER
     Dosage: STARTED PRE-PREGNANCY, STOPPED AT DELIVERY
     Route: 064
  2. SEROQUEL XR [Suspect]
     Indication: PSYCHOTIC DISORDER
     Dosage: STARTED PRE-PREGNANCY, STOPPED AT DELIVERY
     Route: 064
  3. DESVENLAFAXINE [Concomitant]
     Indication: ANTIDEPRESSANT THERAPY
     Dosage: STARTED PRE-PREGNANCY, STOPPED AT DELIVERY
     Route: 064
  4. ELEVIT [Concomitant]
     Indication: VITAMIN SUPPLEMENTATION
     Dosage: STARTED AT FIRST TRIMESTER, STOPPED AT DELIVERY
     Route: 064

REACTIONS (2)
  - Foetal distress syndrome [Recovered/Resolved]
  - Drug withdrawal syndrome neonatal [Recovered/Resolved]
